FAERS Safety Report 9699267 (Version 1)
Quarter: 2013Q4

REPORT INFORMATION
  Report Type: Spontaneous
  Country: US (occurrence: US)
  Receive Date: 20131120
  Receipt Date: 20131120
  Transmission Date: 20140711
  Serious: No
  Sender: FDA-Public Use
  Company Number: US-GILEAD-2008-0015332

PATIENT
  Sex: Female

DRUGS (4)
  1. LETAIRIS [Suspect]
     Indication: PULMONARY HYPERTENSION
     Route: 048
     Dates: start: 200711, end: 200801
  2. NEXIUM [Concomitant]
  3. LIPITOR [Concomitant]
  4. SPIRIVA [Concomitant]

REACTIONS (1)
  - Malaise [Recovered/Resolved]
